FAERS Safety Report 9604379 (Version 1)
Quarter: 2013Q4

REPORT INFORMATION
  Report Type: Spontaneous
  Country: CA (occurrence: CA)
  Receive Date: 20131008
  Receipt Date: 20131008
  Transmission Date: 20140711
  Serious: Yes (Other)
  Sender: FDA-Public Use
  Company Number: CA-RANBAXY-2013US-73916

PATIENT
  Age: 69 Year
  Sex: Male

DRUGS (1)
  1. GABAPENTIN [Suspect]
     Indication: ESSENTIAL TREMOR
     Dosage: 300MG, TID ON DAY 3,INCREASED BY 300MG EACH WEEK TO A DOSE OF 600MG TID, AND THEN TAPERED
     Route: 065

REACTIONS (2)
  - Myasthenia gravis [Recovered/Resolved]
  - Off label use [Recovered/Resolved]
